FAERS Safety Report 24372804 (Version 1)
Quarter: 2024Q3

REPORT INFORMATION
  Report Type: Spontaneous
  Country: GB (occurrence: GB)
  Receive Date: 20240927
  Receipt Date: 20240927
  Transmission Date: 20241017
  Serious: Yes (Other)
  Sender: TEVA
  Company Number: GB-MHRA-TPP24621773C9038262YC1726484936738

PATIENT
  Age: 25 Year
  Sex: Female
  Weight: 95 kg

DRUGS (2)
  1. SUMATRIPTAN [Suspect]
     Active Substance: SUMATRIPTAN\SUMATRIPTAN SUCCINATE
     Indication: Ill-defined disorder
     Dosage: TAKE ONE AS DIRECTED WHEN MIGRAINE STARTS, TPP YC - PLEASE RECLASSIFY
     Route: 065
     Dates: start: 20240520, end: 20240916
  2. COCODAMOL [Concomitant]
     Active Substance: ACETAMINOPHEN\CODEINE PHOSPHATE
     Indication: Ill-defined disorder

REACTIONS (2)
  - Anaphylactic reaction [Recovered/Resolved]
  - Dyspnoea [Unknown]

NARRATIVE: CASE EVENT DATE: 20240916
